FAERS Safety Report 6178059-3 (Version None)
Quarter: 2009Q2

REPORT INFORMATION
  Report Type: 
  Country: None (occurrence: None)
  Receive Date: 20090504
  Receipt Date: 20090422
  Transmission Date: 20091009
  Serious: Yes (Hospitalization, Congenital Anomaly, Other)
  Sender: FDA-Public Use
  Company Number: CA-CELGENEUS-028-20484-09020696

PATIENT
  Sex: Female
  Weight: 0.72 kg

DRUGS (7)
  1. INNOHEP [Suspect]
     Indication: PULMONARY EMBOLISM
     Dosage: 14,000 IU/ML
     Route: 064
     Dates: start: 20040113, end: 20040113
  2. INNOHEP [Suspect]
     Indication: PROPHYLAXIS
  3. ERYTHROMYCIN [Concomitant]
     Indication: PROPHYLAXIS
     Route: 064
     Dates: start: 20040103, end: 20040123
  4. AMOXICILLIN [Concomitant]
     Indication: PROPHYLAXIS
     Route: 064
     Dates: start: 20040103, end: 20040123
  5. PARACETAMOL [Concomitant]
     Indication: PAIN
     Route: 064
     Dates: start: 20040103, end: 20040123
  6. DIMENHYDRINATE [Concomitant]
     Indication: NAUSEA
     Route: 064
     Dates: start: 20040103, end: 20040123
  7. HEPARIN [Concomitant]
     Indication: PROPHYLAXIS
     Route: 064

REACTIONS (3)
  - DRUG EXPOSURE DURING PREGNANCY [None]
  - HEART DISEASE CONGENITAL [None]
  - PREMATURE BABY [None]
